FAERS Safety Report 6306510-4 (Version None)
Quarter: 2009Q3

REPORT INFORMATION
  Report Type: 
  Country: None (occurrence: None)
  Receive Date: 20090811
  Receipt Date: 20090811
  Transmission Date: 20100115
  Serious: Yes (Hospitalization)
  Sender: FDA-Public Use
  Company Number: None

PATIENT
  Age: 55 Year
  Sex: Female
  Weight: 81.1939 kg

DRUGS (2)
  1. CEFEPIME [Suspect]
     Indication: CELLULITIS ORBITAL
     Dosage: 2 GM EVERY 12 HOURS IV
     Route: 042
     Dates: start: 20090716, end: 20090727
  2. CEFEPIME [Suspect]

REACTIONS (3)
  - DERMATOMYOSITIS [None]
  - LEUKOPENIA [None]
  - THROMBOCYTOPENIA [None]
